FAERS Safety Report 22316862 (Version 1)
Quarter: 2023Q2

REPORT INFORMATION
  Report Type: Spontaneous
  Country: FR (occurrence: FR)
  Receive Date: 20230513
  Receipt Date: 20230513
  Transmission Date: 20230721
  Serious: Yes (Other)
  Sender: FDA-Public Use
  Company Number: None

PATIENT
  Age: 18 Year
  Sex: Male
  Weight: 66 kg

DRUGS (2)
  1. VANCOMYCIN [Suspect]
     Active Substance: VANCOMYCIN
     Indication: Infection
     Dosage: 2 G, QD
     Route: 042
     Dates: start: 20210425, end: 20210504
  2. BACTRIM [Suspect]
     Active Substance: SULFAMETHOXAZOLE\TRIMETHOPRIM
     Indication: Infection
     Dosage: 3 DOSAGE FORM, QW (COMPRESS)
     Route: 048
     Dates: start: 20210423, end: 20210503

REACTIONS (3)
  - Pyrexia [Recovered/Resolved]
  - Hepatic cytolysis [Recovered/Resolved]
  - Rash [Recovered/Resolved]

NARRATIVE: CASE EVENT DATE: 20210430
